FAERS Safety Report 13672264 (Version 1)
Quarter: 2017Q2

REPORT INFORMATION
  Report Type: Spontaneous
  Country: US (occurrence: US)
  Receive Date: 20170621
  Receipt Date: 20170621
  Transmission Date: 20170830
  Serious: No
  Sender: FDA-Public Use
  Company Number: US-BAYER-2017-119329

PATIENT
  Age: 83 Year
  Sex: Female
  Weight: 53.97 kg

DRUGS (6)
  1. MIRALAX [Suspect]
     Active Substance: POLYETHYLENE GLYCOL 3350
     Indication: GASTROINTESTINAL DISORDER
     Dosage: 1 DF, PRN
     Route: 048
     Dates: start: 20170615, end: 20170617
  2. CLONAZEPAM. [Concomitant]
     Active Substance: CLONAZEPAM
  3. EFFEXOR [Concomitant]
     Active Substance: VENLAFAXINE HYDROCHLORIDE
  4. SYNTHROID [Concomitant]
     Active Substance: LEVOTHYROXINE SODIUM
  5. METOPROLOL. [Concomitant]
     Active Substance: METOPROLOL
  6. KLONOPIN [Concomitant]
     Active Substance: CLONAZEPAM

REACTIONS (4)
  - Diarrhoea [Not Recovered/Not Resolved]
  - Drug effect delayed [Unknown]
  - Abnormal faeces [Not Recovered/Not Resolved]
  - Anal incontinence [Not Recovered/Not Resolved]

NARRATIVE: CASE EVENT DATE: 20170615
